FAERS Safety Report 6424248-X (Version None)
Quarter: 2009Q4

REPORT INFORMATION
  Report Type: 
  Country: None (occurrence: None)
  Receive Date: 20091102
  Receipt Date: 20091021
  Transmission Date: 20100525
  Serious: Yes (Hospitalization)
  Sender: FDA-Public Use
  Company Number: FR-PFIZER INC-2009286355

PATIENT
  Age: 84 Year
  Sex: Female

DRUGS (5)
  1. ALDACTONE [Suspect]
     Dosage: 25 MG, 1X/DAY
     Route: 048
     Dates: start: 20090207
  2. KENZEN [Suspect]
     Dosage: 1 DF, 1X/DAY
     Route: 048
     Dates: end: 20090207
  3. LASILIX [Suspect]
     Dosage: 1 DF, 1X/DAY
     Route: 048
     Dates: end: 20090207
  4. IKOREL [Suspect]
     Dosage: 1 DF, 2X/DAY
     Route: 048
     Dates: end: 20090207
  5. ASPIRIN/PRAVASTATINE [Concomitant]
     Dosage: 1 DF, 1X/DAY
     Route: 048

REACTIONS (3)
  - FALL [None]
  - HYPONATRAEMIA [None]
  - HYPOTENSION [None]
